FAERS Safety Report 18325228 (Version 1)
Quarter: 2020Q3

REPORT INFORMATION
  Report Type: Report from Study
  Country: PK (occurrence: PK)
  Receive Date: 20200929
  Receipt Date: 20200929
  Transmission Date: 20201103
  Serious: Yes (Other)
  Sender: FDA-Public Use
  Company Number: NVSC2020PK255678

PATIENT
  Age: 61 Year
  Sex: Female

DRUGS (12)
  1. ACTRAPID [Concomitant]
     Active Substance: INSULIN HUMAN
     Indication: HYPERGLYCAEMIA
     Dosage: 65 MG, BID
     Route: 058
     Dates: start: 2018
  2. GOURIC [Concomitant]
     Indication: BLOOD URIC ACID DECREASED
     Dosage: 40 MG
     Route: 048
     Dates: start: 2018
  3. ZOLOFT [Concomitant]
     Active Substance: SERTRALINE HYDROCHLORIDE
     Indication: DEPRESSION
     Dosage: 50 MG,1 HS
     Route: 048
     Dates: start: 2018
  4. LASIX [Concomitant]
     Active Substance: FUROSEMIDE
     Indication: DIURETIC THERAPY
     Dosage: 40 MG, BID
     Route: 048
     Dates: start: 2018
  5. LIPIGET [Concomitant]
     Indication: BLOOD CHOLESTEROL
     Dosage: 10 MG,1HS
     Route: 048
     Dates: start: 2018
  6. IVATAB [Concomitant]
     Indication: CARDIAC FAILURE
     Dosage: 5 MG, BID
     Route: 048
     Dates: start: 2018
  7. ISOPHANE INSULIN [Concomitant]
     Active Substance: INSULIN NOS
     Indication: HYPERGLYCAEMIA
     Dosage: 75 MG, BID
     Route: 058
     Dates: start: 2018
  8. SUSTAC [Concomitant]
     Active Substance: NITROGLYCERIN
     Indication: CORONARY ARTERY DISEASE
     Dosage: 2.6 MG
     Route: 048
     Dates: start: 2018
  9. CALCIUM [Concomitant]
     Active Substance: CALCIUM
     Indication: PRODUCT USED FOR UNKNOWN INDICATION
     Route: 065
  10. DIOVAN [Suspect]
     Active Substance: VALSARTAN
     Indication: HYPERTENSION
     Dosage: 320 MG, QD
     Route: 048
     Dates: start: 20181213, end: 202005
  11. ADALAT CC [Concomitant]
     Active Substance: NIFEDIPINE
     Indication: CARDIAC FAILURE
     Dosage: 300 MG, BID
     Route: 048
     Dates: start: 2018
  12. ALDACTONE [Concomitant]
     Active Substance: SPIRONOLACTONE
     Indication: HYPOTENSION
     Dosage: 25 MG, QOD
     Route: 048
     Dates: start: 2018

REACTIONS (3)
  - Blood pressure systolic increased [Unknown]
  - Hypertension [Unknown]
  - Renal disorder [Not Recovered/Not Resolved]

NARRATIVE: CASE EVENT DATE: 201906
